FAERS Safety Report 8311459-1 (Version None)
Quarter: 2012Q1

REPORT INFORMATION
  Report Type: 
  Country: None (occurrence: None)
  Receive Date: 20120315
  Receipt Date: 20110516
  Transmission Date: 20120608
  Serious: No
  Sender: FDA-Public Use
  Company Number: PHHY2011US42344

PATIENT
  Age: 46 Year
  Sex: Male

DRUGS (1)
  1. GILENYA [Suspect]
     Dosage: ORAL
     Route: 048

REACTIONS (5)
  - HEAD DISCOMFORT [None]
  - TREMOR [None]
  - MUSCULAR WEAKNESS [None]
  - FATIGUE [None]
  - MALAISE [None]
